FAERS Safety Report 19366948 (Version 3)
Quarter: 2022Q1

REPORT INFORMATION
  Report Type: Spontaneous
  Country: US (occurrence: US)
  Receive Date: 20210602
  Receipt Date: 20220304
  Transmission Date: 20220424
  Serious: No
  Sender: FDA-Public Use
  Company Number: US-PFIZER INC-2018103435

PATIENT
  Age: 73 Year
  Sex: Female

DRUGS (3)
  1. LYRICA [Suspect]
     Active Substance: PREGABALIN
     Indication: Thoracic radiculopathy
     Dosage: 2 DF, 1X/DAY (TAKE 2 CAPSULES BY MOUTH ONCE DAILY AT BEDTIME)
     Route: 048
     Dates: start: 20181126
  2. LYRICA [Suspect]
     Active Substance: PREGABALIN
     Indication: Spinal osteoarthritis
     Dosage: 300 MG, 2XDAY (DURING AT BEDTIME) 600MG LAST NIGHT AND THEN 600MG THIS MORNING.
     Route: 048
  3. LYRICA [Suspect]
     Active Substance: PREGABALIN
     Indication: Back pain

REACTIONS (7)
  - Product dose omission in error [Unknown]
  - Insomnia [Unknown]
  - Abdominal discomfort [Unknown]
  - Withdrawal syndrome [Unknown]
  - Incorrect product administration duration [Unknown]
  - Overdose [Unknown]
  - Intentional product misuse [Unknown]
